FAERS Safety Report 19685655 (Version 1)
Quarter: 2021Q3

REPORT INFORMATION
  Report Type: Spontaneous
  Country: US (occurrence: US)
  Receive Date: 20210811
  Receipt Date: 20210811
  Transmission Date: 20211014
  Serious: Yes (Other)
  Sender: FDA-Public Use
  Company Number: None

PATIENT
  Age: 42 Year
  Sex: Female
  Weight: 156.15 kg

DRUGS (1)
  1. INFED [Suspect]
     Active Substance: IRON DEXTRAN
     Dosage: ?          OTHER FREQUENCY:TEST DOSE X 1;?
     Route: 042
     Dates: start: 20210715

REACTIONS (2)
  - Infusion related reaction [None]
  - Dizziness [None]

NARRATIVE: CASE EVENT DATE: 20210715
